FAERS Safety Report 11844452 (Version 2)
Quarter: 2016Q1

REPORT INFORMATION
  Report Type: Spontaneous
  Country: IT (occurrence: IT)
  Receive Date: 20151217
  Receipt Date: 20160229
  Transmission Date: 20160526
  Serious: Yes (Hospitalization)
  Sender: FDA-Public Use
  Company Number: IT-GUERBET LLC-1045595

PATIENT
  Age: 29 Year
  Sex: Male

DRUGS (1)
  1. DOTAREM [Suspect]
     Active Substance: GADOTERATE MEGLUMINE
     Indication: NUCLEAR MAGNETIC RESONANCE IMAGING
     Route: 042
     Dates: start: 20151124, end: 20151124

REACTIONS (5)
  - Urticaria [Recovering/Resolving]
  - Contrast media allergy [Recovering/Resolving]
  - Hypotension [Recovering/Resolving]
  - Feeling hot [Recovering/Resolving]
  - Swelling face [Recovering/Resolving]

NARRATIVE: CASE EVENT DATE: 20151124
